FAERS Safety Report 9387283 (Version 2)
Quarter: 2013Q3

REPORT INFORMATION
  Report Type: Spontaneous
  Country: GR (occurrence: GR)
  Receive Date: 20130708
  Receipt Date: 20130724
  Transmission Date: 20140515
  Serious: Yes (Other)
  Sender: FDA-Public Use
  Company Number: GR-ELI_LILLY_AND_COMPANY-GR201306008313

PATIENT
  Age: 80 Year
  Sex: Male

DRUGS (1)
  1. ZYPADHERA [Suspect]
     Indication: AGGRESSION
     Dosage: 405 MG, SINGLE
     Route: 030
     Dates: start: 20130621

REACTIONS (5)
  - Confusional state [Recovered/Resolved]
  - Somnolence [Recovered/Resolved]
  - Dizziness [Recovered/Resolved]
  - Incorrect dose administered [Recovered/Resolved]
  - Off label use [Recovered/Resolved]
